FAERS Safety Report 13593757 (Version 4)
Quarter: 2017Q3

REPORT INFORMATION
  Report Type: Spontaneous
  Country: KR (occurrence: KR)
  Receive Date: 20170530
  Receipt Date: 20170824
  Transmission Date: 20171127
  Serious: Yes (Other)
  Sender: FDA-Public Use
  Company Number: KR-009507513-1705KOR014676

PATIENT
  Age: 47 Year
  Sex: Male

DRUGS (45)
  1. EMEND (FOSAPREPITANT DIMEGLUMINE) [Suspect]
     Active Substance: FOSAPREPITANT DIMEGLUMINE
     Dosage: 150 MG, ONCE
     Route: 042
     Dates: start: 20170324, end: 20170324
  2. DEXAMETHASONE SODIUM PHOSPHATE. [Concomitant]
     Active Substance: DEXAMETHASONE SODIUM PHOSPHATE
     Dosage: 12 MG, ONCE
     Route: 042
     Dates: start: 20170119, end: 20170119
  3. DEXAMETHASONE SODIUM PHOSPHATE. [Concomitant]
     Active Substance: DEXAMETHASONE SODIUM PHOSPHATE
     Dosage: 8 MG, ONCE
     Route: 042
     Dates: start: 20170120, end: 20170120
  4. DEXAMETHASONE SODIUM PHOSPHATE. [Concomitant]
     Active Substance: DEXAMETHASONE SODIUM PHOSPHATE
     Dosage: 8 MG, ONCE
     Route: 042
     Dates: start: 20170325, end: 20170325
  5. ALOXI [Concomitant]
     Active Substance: PALONOSETRON HYDROCHLORIDE
     Dosage: 0.25 MG, ONCE
     Route: 042
     Dates: start: 20170209, end: 20170209
  6. ALOXI [Concomitant]
     Active Substance: PALONOSETRON HYDROCHLORIDE
     Dosage: 0.25 MG, ONCE
     Route: 042
     Dates: start: 20170324, end: 20170324
  7. MACPERAN [Concomitant]
     Active Substance: METOCLOPRAMIDE HYDROCHLORIDE
     Indication: PROPHYLAXIS OF NAUSEA AND VOMITING
     Dosage: 1 TABLET, TID
     Route: 048
     Dates: start: 20161220, end: 20170214
  8. DENOGAN [Concomitant]
     Active Substance: PROPACETAMOL HYDROCHLORIDE
     Indication: PYREXIA
     Dosage: 1 G, ONCE
     Route: 042
     Dates: start: 20161228, end: 20161228
  9. ULISTIN [Concomitant]
     Active Substance: ULINASTATIN
     Indication: CARDIOVASCULAR EVENT PROPHYLAXIS
     Dosage: 6 ML, ONCE
     Route: 042
     Dates: start: 20170106, end: 20170106
  10. MAGO [Concomitant]
     Indication: CONSTIPATION PROPHYLAXIS
     Dosage: 1 TABLET, TID
     Route: 048
     Dates: start: 20170106, end: 20170302
  11. EMEND (FOSAPREPITANT DIMEGLUMINE) [Suspect]
     Active Substance: FOSAPREPITANT DIMEGLUMINE
     Dosage: 150 MG, ONCE
     Route: 042
     Dates: start: 20170119, end: 20170119
  12. DEXAMETHASONE SODIUM PHOSPHATE. [Concomitant]
     Active Substance: DEXAMETHASONE SODIUM PHOSPHATE
     Indication: PROPHYLAXIS
     Dosage: 8 MG, ONCE
     Route: 042
     Dates: start: 20161230, end: 20161230
  13. DEXAMETHASONE. [Concomitant]
     Active Substance: DEXAMETHASONE
     Dosage: 8 MG, BID
     Route: 048
     Dates: start: 20170211, end: 20170212
  14. TYLENOL [Concomitant]
     Active Substance: ACETAMINOPHEN
     Indication: PAIN PROPHYLAXIS
     Dosage: 1 TABLET, TID
     Route: 048
     Dates: start: 20161220, end: 20170124
  15. EMEND (FOSAPREPITANT DIMEGLUMINE) [Suspect]
     Active Substance: FOSAPREPITANT DIMEGLUMINE
     Dosage: 150 MG, ONCE
     Route: 042
     Dates: start: 20170209, end: 20170209
  16. EMEND (FOSAPREPITANT DIMEGLUMINE) [Suspect]
     Active Substance: FOSAPREPITANT DIMEGLUMINE
     Dosage: 150 MG, ONCE
     Route: 042
     Dates: start: 20170414, end: 20170414
  17. GENEXOL [Concomitant]
     Dosage: 294 MG, ONCE, CYCLE 2
     Route: 042
     Dates: start: 20170119, end: 20170119
  18. GENEXOL [Concomitant]
     Dosage: 300 MG, ONCE, CYCLE 6
     Route: 042
     Dates: start: 20170414, end: 20170414
  19. DEXAMETHASONE SODIUM PHOSPHATE. [Concomitant]
     Active Substance: DEXAMETHASONE SODIUM PHOSPHATE
     Dosage: 12 MG, ONCE
     Route: 042
     Dates: start: 20170414, end: 20170414
  20. ALOXI [Concomitant]
     Active Substance: PALONOSETRON HYDROCHLORIDE
     Dosage: 0.25 MG, ONCE
     Route: 042
     Dates: start: 20170414, end: 20170414
  21. TYLENOL [Concomitant]
     Active Substance: ACETAMINOPHEN
     Indication: ANTIPYRESIS
  22. CISPLAN [Concomitant]
     Active Substance: CISPLATIN
     Dosage: 126 MG, ONCE, CYCLE 2
     Route: 042
     Dates: start: 20170119, end: 20170119
  23. ALOXI [Concomitant]
     Active Substance: PALONOSETRON HYDROCHLORIDE
     Dosage: 0.25 MG, ONCE
     Route: 042
     Dates: start: 20170119, end: 20170119
  24. CISPLAN [Concomitant]
     Active Substance: CISPLATIN
     Dosage: 129 MG, ONCE, CYCLE 3
     Route: 042
     Dates: start: 20170209, end: 20170209
  25. CISPLAN [Concomitant]
     Active Substance: CISPLATIN
     Dosage: 97 MG, ONCE, CYCLE 6
     Route: 042
     Dates: start: 20170414, end: 20170414
  26. DEXAMETHASONE. [Concomitant]
     Active Substance: DEXAMETHASONE
     Dosage: 8 MG, BID
     Route: 048
     Dates: start: 20170326, end: 20170327
  27. BENZYDAMINE HYDROCHLORIDE [Concomitant]
     Active Substance: BENZYDAMINE HYDROCHLORIDE
     Indication: PAIN PROPHYLAXIS
     Dosage: 1 BOTTLE (BTL), ONCE (ROUTE REPORTED AS: GARGLE)
     Dates: start: 20161220, end: 201703
  28. GENEXOL [Concomitant]
     Indication: NON-SMALL CELL LUNG CANCER STAGE IV
     Dosage: 292 MG, ONCE, CYCLE 1
     Route: 042
     Dates: start: 20161229, end: 20161229
  29. GENEXOL [Concomitant]
     Dosage: 300 MG, ONCE, CYCLE 3
     Route: 042
     Dates: start: 20170209, end: 20170209
  30. GENEXOL [Concomitant]
     Dosage: 300 MG, ONCE, CYCLE 5
     Route: 042
     Dates: start: 20170324, end: 20170324
  31. CISPLAN [Concomitant]
     Active Substance: CISPLATIN
     Indication: NON-SMALL CELL LUNG CANCER STAGE IV
     Dosage: 125 MG, ONCE, CYCLE 1
     Route: 042
     Dates: start: 20161229, end: 20161229
  32. DEXAMETHASONE SODIUM PHOSPHATE. [Concomitant]
     Active Substance: DEXAMETHASONE SODIUM PHOSPHATE
     Dosage: 12 MG, ONCE
     Route: 042
     Dates: start: 20170209, end: 20170209
  33. DEXAMETHASONE SODIUM PHOSPHATE. [Concomitant]
     Active Substance: DEXAMETHASONE SODIUM PHOSPHATE
     Dosage: 8 MG, ONCE
     Route: 042
     Dates: start: 20170210, end: 20170210
  34. DEXAMETHASONE SODIUM PHOSPHATE. [Concomitant]
     Active Substance: DEXAMETHASONE SODIUM PHOSPHATE
     Dosage: 12 MG, ONCE
     Route: 042
     Dates: start: 20170324, end: 20170324
  35. DEXAMETHASONE SODIUM PHOSPHATE. [Concomitant]
     Active Substance: DEXAMETHASONE SODIUM PHOSPHATE
     Dosage: 8 MG, ONCE
     Route: 042
     Dates: start: 20170415, end: 20170415
  36. DEXAMETHASONE. [Concomitant]
     Active Substance: DEXAMETHASONE
     Dosage: 8 MG, BID
     Route: 048
     Dates: start: 20170416, end: 20170417
  37. ALOXI [Concomitant]
     Active Substance: PALONOSETRON HYDROCHLORIDE
     Indication: PREMEDICATION
     Dosage: 0.25 MG, ONCE
     Route: 042
     Dates: start: 20161229, end: 20161229
  38. DENOGAN [Concomitant]
     Active Substance: PROPACETAMOL HYDROCHLORIDE
     Dosage: 2 G, ONCE
     Route: 042
     Dates: start: 20170106, end: 20170106
  39. SYLCON [Concomitant]
     Indication: CONSTIPATION PROPHYLAXIS
     Dosage: 1 DF, TID
     Route: 048
     Dates: start: 20170106, end: 20170302
  40. EMEND (FOSAPREPITANT DIMEGLUMINE) [Suspect]
     Active Substance: FOSAPREPITANT DIMEGLUMINE
     Indication: PROPHYLAXIS OF NAUSEA AND VOMITING
     Dosage: 150 MG, ONCE
     Route: 042
     Dates: start: 20161229, end: 20161229
  41. CISPLAN [Concomitant]
     Active Substance: CISPLATIN
     Dosage: 97 MG, ONCE,CYCLE 5
     Route: 042
     Dates: start: 20170324, end: 20170324
  42. DEXAMETHASONE SODIUM PHOSPHATE. [Concomitant]
     Active Substance: DEXAMETHASONE SODIUM PHOSPHATE
     Indication: PREMEDICATION
     Dosage: 12 MG, ONCE
     Route: 042
     Dates: start: 20161229, end: 20161229
  43. DEXAMETHASONE. [Concomitant]
     Active Substance: DEXAMETHASONE
     Dosage: 8 MG, BID
     Route: 048
     Dates: start: 20170121, end: 20170122
  44. DEXAMETHASONE. [Concomitant]
     Active Substance: DEXAMETHASONE
     Indication: PROPHYLAXIS
     Dosage: 8 MG, BID
     Route: 048
     Dates: start: 20161231, end: 20170101
  45. ACETAMINOPHEN (+) TRAMADOL HYDROCHLORIDE [Concomitant]
     Active Substance: ACETAMINOPHEN\TRAMADOL HYDROCHLORIDE
     Indication: PROPHYLAXIS
     Dosage: 1 TABLET, BID, AS REQUIRED
     Route: 048
     Dates: start: 20161230, end: 20170408

REACTIONS (4)
  - Haematochezia [Recovered/Resolved]
  - Haemoptysis [Recovered/Resolved]
  - Anaphylactic reaction [Recovered/Resolved]
  - Chest discomfort [Recovered/Resolved]

NARRATIVE: CASE EVENT DATE: 20170106
